FAERS Safety Report 4965907-5 (Version None)
Quarter: 2006Q2

REPORT INFORMATION
  Report Type: 
  Country: None (occurrence: None)
  Receive Date: 20060407
  Receipt Date: 20060324
  Transmission Date: 20061013
  Serious: Yes (Other)
  Sender: FDA-Public Use
  Company Number: 2006UW05732

PATIENT
  Age: 54 Year
  Sex: Female

DRUGS (3)
  1. ZESTRIL [Suspect]
     Indication: BLOOD PRESSURE
     Route: 048
     Dates: start: 20050805, end: 20051001
  2. PROMETRIUM [Concomitant]
     Route: 048
     Dates: start: 20050912
  3. PREMARIN [Concomitant]
     Route: 048
     Dates: start: 20050912

REACTIONS (2)
  - COUGH [None]
  - PSORIASIS [None]
